FAERS Safety Report 16676712 (Version 1)
Quarter: 2019Q3

REPORT INFORMATION
  Report Type: Spontaneous
  Country: GB (occurrence: GB)
  Receive Date: 20190807
  Receipt Date: 20190807
  Transmission Date: 20191004
  Serious: Yes (Life-Threatening, Hospitalization, Disabling, Other)
  Sender: FDA-Public Use
  Company Number: GB-AUROBINDO-AUR-APL-2019-045746

PATIENT

DRUGS (4)
  1. COCAINE [Concomitant]
     Active Substance: COCAINE
     Indication: PRODUCT USED FOR UNKNOWN INDICATION
     Dosage: UNK
     Route: 065
  2. BUPIVACAINE HYDROCHLORIDE. [Suspect]
     Active Substance: BUPIVACAINE HYDROCHLORIDE
     Indication: PRODUCT USED FOR UNKNOWN INDICATION
     Dosage: UNK
     Route: 042
  3. DIAMORPHINE [Concomitant]
     Active Substance: DIAMORPHINE
     Indication: PRODUCT USED FOR UNKNOWN INDICATION
     Dosage: UNK
     Route: 065
  4. METHADONE [Concomitant]
     Active Substance: METHADONE HYDROCHLORIDE
     Indication: PRODUCT USED FOR UNKNOWN INDICATION
     Dosage: UNK
     Route: 065

REACTIONS (16)
  - Cognitive disorder [Unknown]
  - Delirium [Unknown]
  - Neurotoxicity [Unknown]
  - Confusional state [Unknown]
  - Restlessness [Unknown]
  - Euphoric mood [Unknown]
  - Drug dependence [Unknown]
  - Local anaesthetic systemic toxicity [Unknown]
  - Disturbance in attention [Unknown]
  - Coma [Unknown]
  - Lethargy [Unknown]
  - Fatigue [Unknown]
  - Cardiotoxicity [Unknown]
  - Balance disorder [Unknown]
  - Dyspnoea [Unknown]
  - Somnolence [Unknown]
